FAERS Safety Report 4786421-6 (Version None)
Quarter: 2005Q4

REPORT INFORMATION
  Report Type: 
  Country: None (occurrence: None)
  Receive Date: 20051003
  Receipt Date: 20050926
  Transmission Date: 20060501
  Serious: Yes (Other)
  Sender: FDA-Public Use
  Company Number: US-MERCK-0509USA03753

PATIENT
  Sex: Female

DRUGS (3)
  1. VYTORIN [Suspect]
     Indication: LOW DENSITY LIPOPROTEIN INCREASED
     Route: 048
     Dates: start: 20050714, end: 20050801
  2. ZOCOR [Concomitant]
     Route: 048
     Dates: start: 20000101, end: 20050713
  3. ZOCOR [Concomitant]
     Route: 048
     Dates: start: 20050801

REACTIONS (7)
  - ANAEMIA [None]
  - CHEST PAIN [None]
  - GALLBLADDER DISORDER [None]
  - GASTROOESOPHAGEAL REFLUX DISEASE [None]
  - JAUNDICE [None]
  - LIVER DISORDER [None]
  - PAIN [None]
